FAERS Safety Report 4706843-9 (Version None)
Quarter: 2005Q3

REPORT INFORMATION
  Report Type: 
  Country: None (occurrence: None)
  Receive Date: 20050706
  Receipt Date: 20050629
  Transmission Date: 20060218
  Serious: Yes (Other)
  Sender: FDA-Public Use
  Company Number: US-MERCK-0506USA04325

PATIENT
  Sex: Male

DRUGS (1)
  1. VIOXX [Suspect]
     Route: 048
     Dates: start: 20030401, end: 20041001

REACTIONS (5)
  - CARDIAC DISORDER [None]
  - CARDIOVASCULAR DISORDER [None]
  - MULTI-ORGAN DISORDER [None]
  - MYOCARDIAL INFARCTION [None]
  - PAIN [None]
